FAERS Safety Report 6666471-5 (Version None)
Quarter: 2010Q2

REPORT INFORMATION
  Report Type: 
  Country: None (occurrence: None)
  Receive Date: 20100402
  Receipt Date: 20100324
  Transmission Date: 20101027
  Serious: Yes (Other)
  Sender: FDA-Public Use
  Company Number: BR-GENENTECH-299790

PATIENT
  Sex: Male
  Weight: 130 kg

DRUGS (3)
  1. RITUXIMAB [Suspect]
     Indication: SYSTEMIC LUPUS ERYTHEMATOSUS
     Dosage: UNK
     Route: 042
     Dates: start: 20100215
  2. PREDNISONE TAB [Concomitant]
     Indication: DRUG USE FOR UNKNOWN INDICATION
     Dosage: 30 MG, UNK
  3. CAPTOPRIL [Concomitant]
     Indication: NEPHRITIS
     Dosage: 100 MG, UNK

REACTIONS (2)
  - HAEMATURIA [None]
  - PROTEINURIA [None]
